FAERS Safety Report 4636864-6 (Version None)
Quarter: 2005Q2

REPORT INFORMATION
  Report Type: 
  Country: None (occurrence: None)
  Receive Date: 20050414
  Receipt Date: 20050401
  Transmission Date: 20051028
  Serious: Yes (Hospitalization)
  Sender: FDA-Public Use
  Company Number: 2005AP01980

PATIENT
  Age: 60 Year
  Sex: Male

DRUGS (1)
  1. NEXIUM [Suspect]
     Indication: HELICOBACTER INFECTION

REACTIONS (3)
  - CHOLECYSTECTOMY [None]
  - FEELING ABNORMAL [None]
  - RENAL FAILURE ACUTE [None]
